FAERS Safety Report 14435314 (Version 2)
Quarter: 2018Q1

REPORT INFORMATION
  Report Type: Spontaneous
  Country: US (occurrence: US)
  Receive Date: 20180125
  Receipt Date: 20180330
  Transmission Date: 20180509
  Serious: Yes (Other)
  Sender: FDA-Public Use
  Company Number: US-AMGEN-USASP2018008058

PATIENT
  Age: 0 Day
  Sex: Female
  Weight: 2.92 kg

DRUGS (5)
  1. ENBREL [Suspect]
     Active Substance: ETANERCEPT
     Dosage: UNK
     Route: 064
     Dates: start: 2017, end: 20170404
  2. ENBREL [Suspect]
     Active Substance: ETANERCEPT
     Dosage: UNK
     Route: 064
     Dates: end: 20170207
  3. VITAMIN D [Concomitant]
     Active Substance: CHOLECALCIFEROL
     Indication: BONE DISORDER
     Dosage: 5 ML, QD
     Route: 048
     Dates: start: 20170915, end: 20180302
  4. ENBREL [Suspect]
     Active Substance: ETANERCEPT
     Indication: EXPOSURE DURING PREGNANCY
     Dosage: 50 MG, QMO
     Route: 064
     Dates: start: 20140301, end: 20161221
  5. ENBREL [Suspect]
     Active Substance: ETANERCEPT
     Dosage: UNK
     Route: 064
     Dates: start: 2017, end: 20170302

REACTIONS (1)
  - Ankyloglossia congenital [Unknown]

NARRATIVE: CASE EVENT DATE: 20170831
